FAERS Safety Report 4502149-1 (Version None)
Quarter: 2004Q4

REPORT INFORMATION
  Report Type: 
  Country: None (occurrence: None)
  Receive Date: 20041116
  Receipt Date: 20041103
  Transmission Date: 20050328
  Serious: Yes (Other)
  Sender: FDA-Public Use
  Company Number: ZA-JNJFOC-20041101423

PATIENT
  Sex: Female

DRUGS (4)
  1. TOPAMAX [Suspect]
     Indication: MIGRAINE
     Route: 065
  2. VOLTAREN [Concomitant]
     Route: 065
  3. MERCILON [Concomitant]
     Route: 065
  4. MERCILON [Concomitant]
     Route: 065

REACTIONS (1)
  - CYCLOPLEGIA [None]
